FAERS Safety Report 4616761-2 (Version None)
Quarter: 2005Q1

REPORT INFORMATION
  Report Type: 
  Country: None (occurrence: None)
  Receive Date: 20050321
  Receipt Date: 20050222
  Transmission Date: 20050727
  Serious: Yes (Hospitalization)
  Sender: FDA-Public Use
  Company Number: 213148

PATIENT
  Age: 76 Year
  Sex: Female
  Weight: 69 kg

DRUGS (9)
  1. AVASTIN [Suspect]
     Indication: COLON CANCER
     Dosage: 525 MG, Q3W, INTRAVENOUS
     Route: 042
     Dates: start: 20050113
  2. CAPECITABINE (CAPECITABINE) [Suspect]
     Indication: COLON CANCER
     Dosage: 3300 MG, QDX14D/21DC, ORAL
     Route: 048
     Dates: start: 20050113
  3. OXALIPLATIN (OXALIPLATIN) [Suspect]
     Indication: COLON CANCER
     Dosage: 230 MG, Q3W, INTRAVENOUS
     Route: 042
     Dates: start: 20050113
  4. LODOZ (HYDROCHLOROTHIAZIDE, BISOPROLOL, FUMARATE) [Concomitant]
  5. TANAKAN (GINKGO BILOBA) [Concomitant]
  6. FENOFIBRATE [Concomitant]
  7. OXAZEPAM [Concomitant]
  8. ONDANSETRON HCL [Concomitant]
  9. METHYLPREDNISOLONE [Concomitant]

REACTIONS (2)
  - CANDIDA SEPSIS [None]
  - ILEUS PARALYTIC [None]
